FAERS Safety Report 5431010-3 (Version None)
Quarter: 2007Q3

REPORT INFORMATION
  Report Type: 
  Country: None (occurrence: None)
  Receive Date: 20070830
  Receipt Date: 20070821
  Transmission Date: 20080115
  Serious: Yes (Hospitalization)
  Sender: FDA-Public Use
  Company Number: B0485142A

PATIENT
  Age: 20 Year
  Sex: Female

DRUGS (3)
  1. MALARONE [Suspect]
     Indication: PROPHYLAXIS
     Dates: start: 20070116, end: 20070217
  2. LARIAM [Suspect]
     Indication: PROPHYLAXIS
     Dosage: 2TAB SINGLE DOSE
     Dates: start: 20070101, end: 20070101
  3. NORFLOXACIN [Suspect]
     Indication: INFECTION PARASITIC
     Dates: start: 20070101, end: 20070101

REACTIONS (9)
  - DEHYDRATION [None]
  - DIARRHOEA [None]
  - DIPLOPIA [None]
  - FACIAL PARESIS [None]
  - HEADACHE [None]
  - MALARIA [None]
  - NEUROPATHY [None]
  - PARAESTHESIA [None]
  - STOMACH DISCOMFORT [None]
